FAERS Safety Report 11756003 (Version 1)
Quarter: 2015Q4

REPORT INFORMATION
  Report Type: Spontaneous
  Country: US (occurrence: US)
  Receive Date: 20151119
  Receipt Date: 20151119
  Transmission Date: 20160304
  Serious: No
  Sender: FDA-Public Use
  Company Number: US-ALLERGAN-1510132US

PATIENT
  Age: 75 Year
  Sex: Female
  Weight: 70.3 kg

DRUGS (12)
  1. TRIAMCINOLONACETONIDE [Concomitant]
     Active Substance: TRIAMCINOLONE ACETONIDE
     Dosage: AS NEEDED
  2. SIMVASTATIN. [Suspect]
     Active Substance: SIMVASTATIN
     Dosage: UNK, QD
  3. TRAVATAN Z [Concomitant]
     Active Substance: TRAVOPROST
     Dosage: 2 GTT, QD
     Route: 047
  4. LOSARTAN/HCT [Concomitant]
     Active Substance: HYDROCHLOROTHIAZIDE\LOSARTAN POTASSIUM
     Dosage: UNK, QD
  5. ALPHAGAN P [Suspect]
     Active Substance: BRIMONIDINE TARTRATE
     Indication: INTRAOCULAR PRESSURE INCREASED
     Dosage: ONE DROP IN EACH EYE TWICE A DAY
     Route: 047
     Dates: start: 20150521, end: 20150529
  6. MELOXICAM. [Concomitant]
     Active Substance: MELOXICAM
     Dosage: UNK, QD
  7. METOPROLOL SUCCINATE. [Concomitant]
     Active Substance: METOPROLOL SUCCINATE
     Dosage: UNK, QD
  8. DEXILANT [Concomitant]
     Active Substance: DEXLANSOPRAZOLE
     Dosage: UNK, QD
  9. CLOBETASOL 0.05% [Concomitant]
     Active Substance: CLOBETASOL
     Dosage: AS NEEDED
  10. ASPIRIN. [Concomitant]
     Active Substance: ASPIRIN
  11. MULTIVITAMINS, COMBINATIONS [Concomitant]
     Dosage: UNK, QD
  12. TRAMADOL. [Concomitant]
     Active Substance: TRAMADOL
     Dosage: UNK, QD

REACTIONS (5)
  - Fatigue [Recovered/Resolved]
  - Balance disorder [Recovered/Resolved]
  - Hypotension [Recovered/Resolved]
  - Asthenia [Recovered/Resolved]
  - Nervousness [Recovered/Resolved]

NARRATIVE: CASE EVENT DATE: 201505
